FAERS Safety Report 5341710-1 (Version None)
Quarter: 2007Q2

REPORT INFORMATION
  Report Type: 
  Country: None (occurrence: None)
  Receive Date: 20070530
  Receipt Date: 20070515
  Transmission Date: 20071010
  Serious: Yes (Life-Threatening, Hospitalization)
  Sender: FDA-Public Use
  Company Number: 2006RR-03020

PATIENT
  Age: 81 Year
  Sex: Female

DRUGS (9)
  1. GLICLAZIDE(GLICLAZIDE) UNKNOWN [Suspect]
     Indication: DIABETES MELLITUS
     Dosage: 160 MG, BID, ORAL
     Route: 048
  2. METFORMIN HCL [Suspect]
     Indication: DIABETES MELLITUS INADEQUATE CONTROL
     Dosage: 500 MG, BID, ORAL
     Route: 048
     Dates: start: 20060516, end: 20060605
  3. AMITRIPTYLINE HCL [Concomitant]
  4. PERINDOPRIL [Concomitant]
  5. SIMVASTATIN [Concomitant]
  6. BUDESONIDE [Concomitant]
  7. BUDESONIDE MICRONISED [Concomitant]
  8. FORMOTEROL FUMARATE [Concomitant]
  9. FORMOTEROL FUMARATE DIHYDRATE [Concomitant]

REACTIONS (2)
  - CIRCULATORY COLLAPSE [None]
  - HYPOGLYCAEMIA [None]
